FAERS Safety Report 6204552-0 (Version None)
Quarter: 2009Q2

REPORT INFORMATION
  Report Type: 
  Country: None (occurrence: None)
  Receive Date: 20090522
  Receipt Date: 20090508
  Transmission Date: 20091009
  Serious: Yes (Other)
  Sender: FDA-Public Use
  Company Number: 235278K09USA

PATIENT
  Age: 57 Year
  Sex: Female

DRUGS (6)
  1. REBIF [Suspect]
     Indication: MULTIPLE SCLEROSIS
     Dosage: 44 MCG, 3 IN 1 WEEKS, SUBCUTANEOUS
     Route: 058
     Dates: start: 20051122, end: 20081101
  2. LIPITOR [Concomitant]
  3. BACLOFEN [Concomitant]
  4. AMITRIPTYLINE HCL [Concomitant]
  5. HYDROCODONE (HYDROCODONE) [Concomitant]
  6. UNSPECIFIED MEDICATIONS (ALL OTHER THERAPEUTIC PRODUCTS) [Concomitant]

REACTIONS (4)
  - CONVULSION [None]
  - MALAISE [None]
  - PYREXIA [None]
  - SCAN ABNORMAL [None]
